FAERS Safety Report 6338441-8 (Version None)
Quarter: 2009Q3

REPORT INFORMATION
  Report Type: 
  Country: None (occurrence: None)
  Receive Date: 20090901
  Receipt Date: 20090817
  Transmission Date: 20100115
  Serious: Yes (Hospitalization)
  Sender: FDA-Public Use
  Company Number: 2008AL008831

PATIENT
  Age: 45 Year
  Sex: Male
  Weight: 96.6162 kg

DRUGS (17)
  1. DIGOXIN [Suspect]
     Dosage: 0.125MG, DAILY, PO
     Route: 048
  2. SYNTHROID [Concomitant]
  3. LOVAZA [Concomitant]
  4. CIALIS [Concomitant]
  5. CRESTOR [Concomitant]
  6. GLYBURIDE [Concomitant]
  7. JANUMET [Concomitant]
  8. COREG [Concomitant]
  9. VITAMIN D [Concomitant]
  10. LESCOL [Concomitant]
  11. LEVITRA [Concomitant]
  12. LASIX [Concomitant]
  13. SPIRONOLACTONE [Concomitant]
  14. ZESTRL [Concomitant]
  15. ERGOCALCIFEROL [Concomitant]
  16. GLIMEPIRIDE [Concomitant]
  17. POTASSIUM CHLORIDE [Concomitant]

REACTIONS (14)
  - ATRIOVENTRICULAR BLOCK [None]
  - ATRIOVENTRICULAR BLOCK COMPLETE [None]
  - ATRIOVENTRICULAR DISSOCIATION [None]
  - BLOOD ALKALINE PHOSPHATASE INCREASED [None]
  - BRADYCARDIA [None]
  - CONGESTIVE CARDIOMYOPATHY [None]
  - DIZZINESS [None]
  - HEPATIC CONGESTION [None]
  - HYPOGLYCAEMIA [None]
  - LOSS OF CONSCIOUSNESS [None]
  - MULTIPLE INJURIES [None]
  - PAIN [None]
  - PULMONARY HYPERTENSION [None]
  - SYNCOPE [None]
